FAERS Safety Report 21752344 (Version 1)
Quarter: 2022Q4

REPORT INFORMATION
  Report Type: Spontaneous
  Country: NL (occurrence: NL)
  Receive Date: 20221220
  Receipt Date: 20221220
  Transmission Date: 20230113
  Serious: Yes (Life-Threatening, Other)
  Sender: FDA-Public Use
  Company Number: NL-LRB-00855146

PATIENT
  Sex: Male
  Weight: 98 kg

DRUGS (3)
  1. COLCHICINE [Suspect]
     Active Substance: COLCHICINE
     Indication: Gout
     Dosage: 0.5 MILLIGRAM(2-3X PER DAG 1 STUK)
     Route: 065
     Dates: start: 20221130, end: 20221202
  2. INDAPAMIDE\PERINDOPRIL [Suspect]
     Active Substance: INDAPAMIDE\PERINDOPRIL
     Indication: Hypertension
     Dosage: 1 DOSAGE FORM, ONCE A DAY(1X DAAGS 1 STUK)
     Route: 065
     Dates: start: 20150101, end: 20221202
  3. Salbutamol ipratropio bionand [Concomitant]
     Indication: Product used for unknown indication
     Dosage: VERNEVELVLOEISTOF, 1/0,2 MG/ML (MILLIGRAM PER MILLILITER)
     Route: 065

REACTIONS (1)
  - Angioedema [Recovering/Resolving]
